FAERS Safety Report 13558664 (Version 2)
Quarter: 2017Q2

REPORT INFORMATION
  Report Type: Report from Study
  Country: US (occurrence: US)
  Receive Date: 20170518
  Receipt Date: 20170614
  Transmission Date: 20170830
  Serious: Yes (Hospitalization, Other)
  Sender: FDA-Public Use
  Company Number: US-THERATECHNOLOGIES, INC.-TH-2017-00227

PATIENT

DRUGS (23)
  1. ZIPRASIDONE. [Concomitant]
     Active Substance: ZIPRASIDONE
  2. SUPREP BOWEL PREP [Concomitant]
     Active Substance: MAGNESIUM SULFATE\POTASSIUM SULFATE\SODIUM SULFATE
  3. FINASTERIDE. [Concomitant]
     Active Substance: FINASTERIDE
  4. APAP CODEINE [Concomitant]
  5. MIRTAZAPINE GA [Concomitant]
     Active Substance: MIRTAZAPINE
  6. CELECOXIB. [Concomitant]
     Active Substance: CELECOXIB
  7. FLOVENT [Concomitant]
     Active Substance: FLUTICASONE PROPIONATE
  8. NEOMYCIN [Concomitant]
     Active Substance: NEOMYCIN
  9. VALACYCLOVIR [Concomitant]
     Active Substance: VALACYCLOVIR HYDROCHLORIDE
  10. LAMOTRIGINE. [Concomitant]
     Active Substance: LAMOTRIGINE
  11. EGRIFTA [Suspect]
     Active Substance: TESAMORELIN
     Indication: LIPODYSTROPHY ACQUIRED
     Dosage: 2 MG MILLIGRAM(S), QD
     Route: 058
     Dates: start: 20141231, end: 201606
  12. TEMAZEPAM. [Concomitant]
     Active Substance: TEMAZEPAM
  13. TRULICITY [Concomitant]
     Active Substance: DULAGLUTIDE
  14. LORAZEPAM. [Concomitant]
     Active Substance: LORAZEPAM
  15. PROPANOLOL                         /00030001/ [Concomitant]
     Active Substance: PROPRANOLOL HYDROCHLORIDE
  16. TAMSULOSIN [Concomitant]
     Active Substance: TAMSULOSIN
  17. TESTOSTERONE CYPIONATE. [Concomitant]
     Active Substance: TESTOSTERONE CYPIONATE
     Dosage: UNK
  18. BUSPIRONE [Concomitant]
     Active Substance: BUSPIRONE HYDROCHLORIDE
  19. OTHER THERAPEUTIC PRODUCTS [Concomitant]
     Active Substance: UNSPECIFIED INGREDIENT
  20. MULTIVITAMIN                       /00097801/ [Concomitant]
     Active Substance: VITAMINS
  21. APAP W/HYDROCODONE [Concomitant]
     Active Substance: ACETAMINOPHEN\HYDROCODONE
  22. DULOXETINE. [Concomitant]
     Active Substance: DULOXETINE
  23. OTHER THERAPEUTIC PRODUCTS [Concomitant]
     Active Substance: UNSPECIFIED INGREDIENT

REACTIONS (2)
  - Surgery [Unknown]
  - Bladder cancer [Unknown]

NARRATIVE: CASE EVENT DATE: 201606
